FAERS Safety Report 6102035-X (Version None)
Quarter: 2009Q1

REPORT INFORMATION
  Report Type: 
  Country: None (occurrence: None)
  Receive Date: 20090304
  Receipt Date: 20090224
  Transmission Date: 20090719
  Serious: Yes (Hospitalization)
  Sender: FDA-Public Use
  Company Number: US-JNJFOC-20081206042

PATIENT
  Sex: Female
  Weight: 67 kg

DRUGS (6)
  1. REMICADE [Suspect]
     Dosage: FOURTH INFUSION, 350 MG
     Route: 042
  2. REMICADE [Suspect]
     Indication: COLITIS ULCERATIVE
     Dosage: 3 DOSES
     Route: 042
  3. PREDNISONE [Concomitant]
     Indication: COLITIS ULCERATIVE
  4. METHOTREXATE [Concomitant]
     Indication: COLITIS ULCERATIVE
  5. ZANTAC [Concomitant]
     Indication: COLITIS ULCERATIVE
  6. IRON SULFATETHIAMIN COMPOUND TAB [Concomitant]
     Indication: ANAEMIA

REACTIONS (1)
  - DEMYELINATION [None]
